FAERS Safety Report 5017988-0 (Version None)
Quarter: 2006Q2

REPORT INFORMATION
  Report Type: 
  Country: None (occurrence: None)
  Receive Date: 20060602
  Receipt Date: 20060602
  Transmission Date: 20061013
  Serious: Yes (Hospitalization)
  Sender: FDA-Public Use
  Company Number: None

PATIENT
  Age: 68 Year
  Sex: Male
  Weight: 69 kg

DRUGS (15)
  1. RISPERIDONE [Suspect]
     Indication: BIPOLAR DISORDER
     Dosage: 1 MG QAM 2 MG HS
     Dates: start: 20060403, end: 20060503
  2. OLANZAPINE [Suspect]
     Indication: BIPOLAR DISORDER
     Dosage: 10 MG HS
     Dates: start: 20060329, end: 20060403
  3. DONEPEZIL HCL [Concomitant]
  4. LABETALOL [Concomitant]
  5. SYNTHROID [Concomitant]
  6. LITHIUM ER [Concomitant]
  7. LOVASTATIN [Concomitant]
  8. MICONAZOLE [Concomitant]
  9. NIFEDIPINE [Concomitant]
  10. RISPERIDONE ODT [Concomitant]
  11. ZOLPIDEM TARTRATE [Concomitant]
  12. APAP TAB [Concomitant]
  13. ASPIRIN [Concomitant]
  14. DEPAKOTE [Concomitant]
  15. ENALAPRIL [Concomitant]

REACTIONS (8)
  - BLOOD CHLORIDE INCREASED [None]
  - BLOOD GASES ABNORMAL [None]
  - BLOOD GLUCOSE INCREASED [None]
  - HYPERNATRAEMIA [None]
  - HYPERTENSION [None]
  - NEUROLEPTIC MALIGNANT SYNDROME [None]
  - PARKINSON'S DISEASE [None]
  - RENAL FAILURE CHRONIC [None]
